FAERS Safety Report 10872562 (Version 1)
Quarter: 2015Q1

REPORT INFORMATION
  Report Type: Other
  Country: JP (occurrence: JP)
  Receive Date: 20150227
  Receipt Date: 20150227
  Transmission Date: 20150721
  Serious: Yes (Other)
  Sender: FDA-Public Use
  Company Number: JP-LUPIN PHARMACEUTICALS INC.-2015-00621

PATIENT
  Age: 66 Year
  Sex: Female

DRUGS (1)
  1. RIFAMPIN. [Suspect]
     Active Substance: RIFAMPIN
     Indication: PERITONEAL TUBERCULOSIS
     Route: 065

REACTIONS (1)
  - Hypothyroidism [Recovered/Resolved]
